FAERS Safety Report 4626805-X (Version None)
Quarter: 2005Q1

REPORT INFORMATION
  Report Type: 
  Country: None (occurrence: None)
  Receive Date: 20050330
  Receipt Date: 20050318
  Transmission Date: 20050727
  Serious: Yes (Death)
  Sender: FDA-Public Use
  Company Number: BRO-008420

PATIENT
  Age: 62 Year
  Sex: Male

DRUGS (1)
  1. IOPAMIDOL-300 [Suspect]
     Indication: COMPUTERISED TOMOGRAM
     Dosage: 100 ML
     Route: 042
     Dates: start: 20050222, end: 20050222

REACTIONS (10)
  - BLOOD CREATININE INCREASED [None]
  - BLOOD POTASSIUM INCREASED [None]
  - CARDIAC ARREST [None]
  - CONDITION AGGRAVATED [None]
  - CONTRAST MEDIA REACTION [None]
  - GENERAL PHYSICAL HEALTH DETERIORATION [None]
  - JAUNDICE CHOLESTATIC [None]
  - LIVER DISORDER [None]
  - RENAL DISORDER [None]
  - SHOCK [None]
